FAERS Safety Report 6104407-6 (Version None)
Quarter: 2009Q1

REPORT INFORMATION
  Report Type: 
  Country: None (occurrence: None)
  Receive Date: 20090227
  Receipt Date: 20081001
  Transmission Date: 20090719
  Serious: Yes (Life-Threatening, Hospitalization, Other)
  Sender: FDA-Public Use
  Company Number: RB-4678-2008

PATIENT
  Age: 60 Year
  Sex: Male

DRUGS (8)
  1. SUBOXONE [Suspect]
     Indication: DRUG DEPENDENCE
     Dosage: 8 MG TID SUBLINGUAL
     Route: 060
     Dates: start: 20060506
  2. LYRICA [Suspect]
     Indication: NEUROPATHY PERIPHERAL
     Dosage: 75 MG BID
  3. KLONOPIN [Suspect]
     Indication: ANXIETY
     Dosage: 1-2 MG QD
     Dates: end: 20070901
  4. WELLBUTRIN [Concomitant]
  5. SYNTHROID [Concomitant]
  6. ASPIRIN [Concomitant]
  7. CYMBALTA [Concomitant]
  8. ZESTRIL [Concomitant]

REACTIONS (2)
  - ACCIDENTAL OVERDOSE [None]
  - RESPIRATORY FAILURE [None]
